FAERS Safety Report 21611108 (Version 1)
Quarter: 2022Q4

REPORT INFORMATION
  Report Type: Spontaneous
  Country: TH (occurrence: TH)
  Receive Date: 20221117
  Receipt Date: 20221117
  Transmission Date: 20230112
  Serious: Yes (Death, Other)
  Sender: FDA-Public Use
  Company Number: TH-GUERBETG-TH-20220031

PATIENT
  Age: 46 Year
  Sex: Male

DRUGS (2)
  1. LIPIODOL [Suspect]
     Active Substance: ETHIODIZED OIL
     Indication: Therapeutic embolisation
     Dosage: 4.8 ML OF LIPIODOL IN MIXTURE WITH 3 ML OF N-BUTYL-CYANOACRYLATE.
  2. UNSPECIFIED INGREDIENT [Suspect]
     Active Substance: UNSPECIFIED INGREDIENT
     Indication: Therapeutic embolisation
     Dosage: 4.8 ML OF LIPIODOL IN MIXTURE WITH 3 ML OF N-BUTYL-CYANOACRYLATE.

REACTIONS (3)
  - Pulmonary embolism [Fatal]
  - Cardiac arrest [Fatal]
  - Product use in unapproved indication [Unknown]
